FAERS Safety Report 14513581 (Version 1)
Quarter: 2018Q1

REPORT INFORMATION
  Report Type: Spontaneous
  Country: US (occurrence: US)
  Receive Date: 20180208
  Receipt Date: 20180208
  Transmission Date: 20180509
  Serious: Yes (Other)
  Sender: FDA-Public Use
  Company Number: None

PATIENT
  Age: 29 Year
  Sex: Male
  Weight: 90 kg

DRUGS (3)
  1. HYDROMORPHONE [Concomitant]
     Active Substance: HYDROMORPHONE
  2. NOVOSEVEN [Concomitant]
     Active Substance: COAGULATION FACTOR VIIA RECOMBINANT HUMAN
  3. CELECOXIB. [Suspect]
     Active Substance: CELECOXIB
     Indication: HAEMOPHILIC ARTHROPATHY
     Route: 048

REACTIONS (3)
  - Haemorrhage [None]
  - Product substitution issue [None]
  - Haemorrhagic diathesis [None]

NARRATIVE: CASE EVENT DATE: 20150916
